FAERS Safety Report 24766052 (Version 1)
Quarter: 2024Q4

REPORT INFORMATION
  Report Type: Spontaneous
  Country: CN (occurrence: CN)
  Receive Date: 20241223
  Receipt Date: 20241223
  Transmission Date: 20250115
  Serious: Yes (Hospitalization, Other)
  Sender: ALEXION PHARMACEUTICALS
  Company Number: CN-ASTRAZENECA-202412CHN018183CN

PATIENT
  Age: 66 Year
  Weight: 62 kg

DRUGS (6)
  1. TAGRISSO [Suspect]
     Active Substance: OSIMERTINIB
     Indication: Prophylaxis
     Dosage: 80 MILLIGRAM, QD
  2. TAGRISSO [Suspect]
     Active Substance: OSIMERTINIB
     Dosage: 80 MILLIGRAM, QD
     Route: 048
  3. TAGRISSO [Suspect]
     Active Substance: OSIMERTINIB
     Dosage: 80 MILLIGRAM, QD
  4. TAGRISSO [Suspect]
     Active Substance: OSIMERTINIB
     Dosage: 80 MILLIGRAM, QD
     Route: 048
  5. SINTILIMAB [Suspect]
     Active Substance: SINTILIMAB
     Indication: Prophylaxis
     Dosage: 200 MILLIGRAM, QMONTH
     Route: 042
  6. SINTILIMAB [Suspect]
     Active Substance: SINTILIMAB
     Dosage: 200 MILLIGRAM, QMONTH

REACTIONS (1)
  - Myelosuppression [Recovering/Resolving]
